FAERS Safety Report 6833370-5 (Version None)
Quarter: 2010Q3

REPORT INFORMATION
  Report Type: 
  Country: None (occurrence: None)
  Receive Date: 20100712
  Receipt Date: 20070320
  Transmission Date: 20110219
  Serious: No
  Sender: FDA-Public Use
  Company Number: US-PFIZER INC-2007023002

PATIENT
  Age: 31 Year
  Sex: Male
  Weight: 79.38 kg

DRUGS (1)
  1. CHANTIX [Suspect]
     Indication: SMOKING CESSATION THERAPY
     Dates: start: 20070101, end: 20070301

REACTIONS (5)
  - ARTHRALGIA [None]
  - HEADACHE [None]
  - MYALGIA [None]
  - NECK PAIN [None]
  - RASH [None]
